FAERS Safety Report 5403177-4 (Version None)
Quarter: 2007Q3

REPORT INFORMATION
  Report Type: 
  Country: None (occurrence: None)
  Receive Date: 20070801
  Receipt Date: 20070725
  Transmission Date: 20080115
  Serious: Yes (Other)
  Sender: FDA-Public Use
  Company Number: US-PFIZER INC-2003126043

PATIENT
  Sex: Male
  Weight: 79.4 kg

DRUGS (11)
  1. VIAGRA [Suspect]
     Indication: ERECTILE DYSFUNCTION
     Route: 048
  2. PROSCAR [Suspect]
     Indication: PROSTATIC DISORDER
  3. TAMSULOSIN HCL [Suspect]
     Indication: PROSTATIC DISORDER
  4. RASAGILINE [Suspect]
     Indication: PARKINSON'S DISEASE
  5. VITAMIN CAP [Concomitant]
     Route: 048
  6. ASPIRIN [Concomitant]
     Route: 048
  7. VITAMIN E [Concomitant]
     Route: 048
  8. LISINOPRIL [Concomitant]
     Route: 048
  9. PEPCID [Concomitant]
     Route: 048
  10. PROSCAR [Concomitant]
     Route: 048
  11. ATENOLOL [Concomitant]
     Route: 048

REACTIONS (7)
  - DRUG INEFFECTIVE [None]
  - EJACULATION DISORDER [None]
  - INTENTIONAL DRUG MISUSE [None]
  - PARKINSON'S DISEASE [None]
  - PROSTATIC DISORDER [None]
  - URINARY RETENTION [None]
  - URINARY TRACT INFECTION [None]
